FAERS Safety Report 8638545 (Version 2)
Quarter: 2013Q1

REPORT INFORMATION
  Report Type: Spontaneous
  Country: ES (occurrence: ES)
  Receive Date: 20120627
  Receipt Date: 20130220
  Transmission Date: 20140127
  Serious: Yes (Hospitalization)
  Sender: FDA-Public Use
  Company Number: ES-JNJFOC-20120211462

PATIENT
  Age: 25 Year
  Sex: Female
  Weight: 58 kg

DRUGS (7)
  1. XEPLION [Suspect]
     Indication: SCHIZOPHRENIA
     Route: 030
  2. XEPLION [Suspect]
     Indication: SCHIZOPHRENIA
     Route: 030
  3. HALOPERIDOL [Interacting]
     Indication: PSYCHOTIC DISORDER
     Route: 065
  4. PERPHENAZINE [Interacting]
     Indication: PSYCHOTIC DISORDER
     Route: 065
  5. CLORAZEPATE [Concomitant]
     Indication: PRODUCT USED FOR UNKNOWN INDICATION
     Route: 065
  6. LAMOTRIGINE [Concomitant]
     Indication: CONVULSION PROPHYLAXIS
     Route: 065
  7. BIPERIDEN [Concomitant]
     Indication: PARKINSONISM
     Route: 065

REACTIONS (2)
  - Extrapyramidal disorder [Recovered/Resolved]
  - Drug interaction [Recovered/Resolved]
